FAERS Safety Report 18427126 (Version 1)
Quarter: 2020Q4

REPORT INFORMATION
  Report Type: Spontaneous
  Country: US (occurrence: US)
  Receive Date: 20201021
  Receipt Date: 20201021
  Transmission Date: 20210114
  Serious: No
  Sender: FDA-Public Use
  Company Number: None

PATIENT
  Age: 100 Year
  Sex: Female

DRUGS (2)
  1. VALSARTAN. [Suspect]
     Active Substance: VALSARTAN
     Indication: RECALLED PRODUCT
     Route: 048
  2. NATURE BOOST [DIETARY SUPPLEMENT] [Suspect]
     Active Substance: DIETARY SUPPLEMENT
     Indication: DIABETES MELLITUS

REACTIONS (2)
  - Product label on wrong product [None]
  - Product dispensing error [None]

NARRATIVE: CASE EVENT DATE: 20201021
